FAERS Safety Report 6854246-3 (Version None)
Quarter: 2010Q3

REPORT INFORMATION
  Report Type: 
  Country: None (occurrence: None)
  Receive Date: 20100717
  Receipt Date: 20080101
  Transmission Date: 20110219
  Serious: No
  Sender: FDA-Public Use
  Company Number: US-PFIZER INC-2008001356

PATIENT
  Sex: Female
  Weight: 70.5 kg

DRUGS (3)
  1. CHANTIX [Suspect]
     Indication: SMOKING CESSATION THERAPY
     Dates: start: 20071120
  2. CANNABIS [Interacting]
     Dates: end: 20071201
  3. LOTENSIN [Concomitant]

REACTIONS (2)
  - ABNORMAL DREAMS [None]
  - DRUG INTERACTION [None]
